FAERS Safety Report 24007798 (Version 2)
Quarter: 2024Q3

REPORT INFORMATION
  Report Type: Spontaneous
  Country: US (occurrence: US)
  Receive Date: 20240625
  Receipt Date: 20240710
  Transmission Date: 20241016
  Serious: No
  Sender: ROCHE
  Company Number: US-ROCHE-10000001708

PATIENT
  Age: 45 Year
  Sex: Male

DRUGS (7)
  1. RITUXIMAB [Suspect]
     Active Substance: RITUXIMAB
     Indication: Sjogren^s syndrome
     Route: 042
     Dates: start: 2021
  2. Integrin [Concomitant]
  3. POTASSIUM [Concomitant]
     Active Substance: POTASSIUM
  4. NIACIN [Concomitant]
     Active Substance: NIACIN
  5. MERCURY [Concomitant]
     Active Substance: MERCURY
  6. LEAD [Concomitant]
     Active Substance: LEAD
  7. ALUMINUM [Concomitant]
     Active Substance: ALUMINUM

REACTIONS (1)
  - Eye infection viral [Unknown]
